FAERS Safety Report 15286155 (Version 1)
Quarter: 2018Q4

REPORT INFORMATION
  Report Type: Report from Study
  Country: ES (occurrence: ES)
  Receive Date: 20180816
  Receipt Date: 20180816
  Transmission Date: 20190204
  Serious: Yes (Hospitalization)
  Sender: FDA-Public Use
  Company Number: ES-TEVA-2018-ES-943011

PATIENT
  Age: 16 Year
  Sex: Male

DRUGS (10)
  1. AMOXICILINA (108A) [Concomitant]
     Active Substance: AMOXICILLIN
     Dosage: 500 MILLIGRAM DAILY;
     Route: 048
     Dates: start: 20171108
  2. CICLOSPORINA (406A) [Concomitant]
     Active Substance: CYCLOSPORINE
     Indication: CHRONIC GRAFT VERSUS HOST DISEASE
     Route: 048
     Dates: start: 20171109, end: 20180108
  3. CICLOSPORINA (406A) [Suspect]
     Active Substance: CYCLOSPORINE
     Indication: CHRONIC GRAFT VERSUS HOST DISEASE
     Route: 048
     Dates: start: 20180109
  4. HIDROCORTISONA (54A) [Interacting]
     Active Substance: HYDROCORTISONE
     Route: 048
     Dates: start: 20171108, end: 20180115
  5. JAKAVI 5 MG COMPRIMIDOS 56 COMPRIMIDOS [Interacting]
     Active Substance: RUXOLITINIB PHOSPHATE
     Indication: CHRONIC GRAFT VERSUS HOST DISEASE
     Route: 048
     Dates: start: 20170731
  6. AMFOTERICINA B (408A) [Concomitant]
     Route: 042
     Dates: start: 20171109
  7. CIPROFLOXACINO (2049A) [Concomitant]
     Active Substance: CIPROFLOXACIN
     Route: 048
     Dates: start: 20171117, end: 20180115
  8. PENTAMIDINA ISETIONATO (5010IF) [Concomitant]
     Route: 042
     Dates: start: 20170718, end: 20171205
  9. AMLODIPINO (2503A) [Concomitant]
     Active Substance: AMLODIPINE BESYLATE
     Indication: HYPERTENSION
     Route: 048
     Dates: start: 20170801
  10. ACICLOVIR (201A) [Concomitant]
     Active Substance: ACYCLOVIR
     Indication: PROPHYLAXIS
     Route: 048
     Dates: start: 20171108

REACTIONS (2)
  - Septic shock [Recovered/Resolved]
  - Drug interaction [Unknown]

NARRATIVE: CASE EVENT DATE: 20180114
